FAERS Safety Report 14659311 (Version 3)
Quarter: 2018Q2

REPORT INFORMATION
  Report Type: Report from Study
  Country: CA (occurrence: CA)
  Receive Date: 20180320
  Receipt Date: 20180508
  Transmission Date: 20180711
  Serious: Yes (Hospitalization, Other)
  Sender: FDA-Public Use
  Company Number: CA-ROCHE-2025489

PATIENT
  Age: 76 Year
  Sex: Female

DRUGS (25)
  1. IMODIUM [Concomitant]
     Active Substance: LOPERAMIDE HYDROCHLORIDE
     Indication: PRODUCT USED FOR UNKNOWN INDICATION
     Route: 065
  2. LEVOTHYROXINE. [Concomitant]
     Active Substance: LEVOTHYROXINE
  3. GASTROLYTE (CANADA) [Concomitant]
  4. ESBRIET [Suspect]
     Active Substance: PIRFENIDONE
     Dosage: SUSPENDED
     Route: 048
     Dates: start: 20180206, end: 20180212
  5. PANTOPRAZOLE [Concomitant]
     Active Substance: PANTOPRAZOLE
  6. MIRABEGRON [Concomitant]
     Active Substance: MIRABEGRON
  7. AMITRIPTYLINE [Concomitant]
     Active Substance: AMITRIPTYLINE
  8. SENOKOT [Concomitant]
     Active Substance: SENNOSIDES
  9. ESBRIET [Suspect]
     Active Substance: PIRFENIDONE
     Route: 048
     Dates: start: 20180303
  10. ESBRIET [Suspect]
     Active Substance: PIRFENIDONE
     Route: 048
     Dates: start: 201803
  11. FUROSEMIDE. [Concomitant]
     Active Substance: FUROSEMIDE
  12. OXYGEN. [Concomitant]
     Active Substance: OXYGEN
  13. ONDANSETRON [Concomitant]
     Active Substance: ONDANSETRON
  14. ESBRIET [Suspect]
     Active Substance: PIRFENIDONE
     Indication: IDIOPATHIC PULMONARY FIBROSIS
     Route: 048
     Dates: start: 20171111
  15. METFORMIN HYDROCHLORIDE. [Suspect]
     Active Substance: METFORMIN HYDROCHLORIDE
     Indication: PRODUCT USED FOR UNKNOWN INDICATION
     Dosage: UNKNOWN THERAPY DATES, DOSE, FREQUENCY, ROUTE AND INDICATION.
     Route: 065
  16. SYMBICORT [Concomitant]
     Active Substance: BUDESONIDE\FORMOTEROL FUMARATE DIHYDRATE
  17. ROBITUSSIN (GUAIFENESIN) [Concomitant]
     Active Substance: GUAIFENESIN
     Indication: COUGH
  18. ESBRIET [Suspect]
     Active Substance: PIRFENIDONE
     Route: 048
     Dates: start: 2017
  19. ESBRIET [Suspect]
     Active Substance: PIRFENIDONE
     Route: 048
  20. ATROVENT [Concomitant]
     Active Substance: IPRATROPIUM BROMIDE
  21. BETAHISTINE [Concomitant]
     Active Substance: BETAHISTINE
  22. ESBRIET [Suspect]
     Active Substance: PIRFENIDONE
     Route: 048
     Dates: start: 20180217
  23. ESBRIET [Suspect]
     Active Substance: PIRFENIDONE
     Dosage: PER DAY
     Route: 048
     Dates: start: 201803, end: 20180422
  24. OXYCODONE [Concomitant]
     Active Substance: OXYCODONE
  25. PRADAXA [Concomitant]
     Active Substance: DABIGATRAN ETEXILATE MESYLATE

REACTIONS (46)
  - Dizziness [Not Recovered/Not Resolved]
  - Feeling abnormal [Unknown]
  - Hypertension [Unknown]
  - Oxygen saturation decreased [Recovering/Resolving]
  - Cough [Unknown]
  - Dysphonia [Not Recovered/Not Resolved]
  - Urticaria [Not Recovered/Not Resolved]
  - Haemorrhoids [Unknown]
  - Migraine [Not Recovered/Not Resolved]
  - Gait disturbance [Unknown]
  - Vision blurred [Not Recovered/Not Resolved]
  - Pneumonia [Recovering/Resolving]
  - Laceration [Unknown]
  - Chest pain [Not Recovered/Not Resolved]
  - Retching [Not Recovered/Not Resolved]
  - Skin fissures [Unknown]
  - Memory impairment [Unknown]
  - Fatigue [Not Recovered/Not Resolved]
  - Disorientation [Recovering/Resolving]
  - Dehydration [Unknown]
  - Drug dose omission [Unknown]
  - Pharyngeal mass [Not Recovered/Not Resolved]
  - Insomnia [Not Recovered/Not Resolved]
  - Fall [Unknown]
  - Vertigo [Unknown]
  - Decreased appetite [Recovering/Resolving]
  - Eye pain [Recovering/Resolving]
  - Headache [Recovered/Resolved]
  - Abdominal pain upper [Not Recovered/Not Resolved]
  - Malaise [Unknown]
  - Headache [Unknown]
  - Dyspnoea [Unknown]
  - Vomiting [Recovering/Resolving]
  - Gastric disorder [Unknown]
  - Pruritus [Unknown]
  - Sleep disorder [Not Recovered/Not Resolved]
  - Treatment noncompliance [Unknown]
  - Clostridium difficile infection [Not Recovered/Not Resolved]
  - Diarrhoea [Not Recovered/Not Resolved]
  - Nausea [Not Recovered/Not Resolved]
  - Diarrhoea [Not Recovered/Not Resolved]
  - Oral pain [Not Recovered/Not Resolved]
  - Tremor [Not Recovered/Not Resolved]
  - Influenza [Unknown]
  - Anal incontinence [Unknown]
  - Dyspepsia [Not Recovered/Not Resolved]

NARRATIVE: CASE EVENT DATE: 2017
